FAERS Safety Report 14474645 (Version 1)
Quarter: 2018Q1

REPORT INFORMATION
  Report Type: Spontaneous
  Country: FR (occurrence: FR)
  Receive Date: 20180201
  Receipt Date: 20180201
  Transmission Date: 20180509
  Serious: Yes (Hospitalization)
  Sender: FDA-Public Use
  Company Number: PHHY2018FR012345

PATIENT
  Age: 69 Year
  Sex: Female
  Weight: 100 kg

DRUGS (6)
  1. FENOFIBRATE. [Concomitant]
     Active Substance: FENOFIBRATE
     Indication: DYSLIPIDAEMIA
     Dosage: 145 MG, UNK
     Route: 048
  2. CARBOPLATINE [Suspect]
     Active Substance: CARBOPLATIN
     Indication: ADENOCARCINOMA
     Route: 042
  3. KARDEGIC [Concomitant]
     Active Substance: ASPIRIN DL-LYSINE
     Indication: ISCHAEMIC STROKE
     Dosage: 1 DF, QD
     Route: 048
     Dates: start: 1999
  4. PACLITAXEL. [Suspect]
     Active Substance: PACLITAXEL
     Indication: ADENOCARCINOMA
     Dosage: 80 MG/M2, UNK
     Route: 042
  5. INNOHEP [Concomitant]
     Active Substance: TINZAPARIN SODIUM
     Indication: ANTICOAGULANT THERAPY
     Route: 058
  6. AVASTIN [Suspect]
     Active Substance: BEVACIZUMAB
     Indication: ADENOCARCINOMA
     Dosage: 7.5 MG/KG, UNK
     Route: 042

REACTIONS (1)
  - Catheter site thrombosis [Recovered/Resolved]

NARRATIVE: CASE EVENT DATE: 20170412
